FAERS Safety Report 20802895 (Version 1)
Quarter: 2022Q2

REPORT INFORMATION
  Report Type: Spontaneous
  Country: US (occurrence: US)
  Receive Date: 20220509
  Receipt Date: 20220509
  Transmission Date: 20220721
  Serious: Yes (Other)
  Sender: FDA-Public Use
  Company Number: US-GW PHARMA-2022-US-014068

PATIENT
  Sex: Male
  Weight: 18.96 kg

DRUGS (1)
  1. EPIDIOLEX [Suspect]
     Active Substance: CANNABIDIOL
     Indication: Lennox-Gastaut syndrome
     Dosage: 310 MILLIGRAM, BID (G-TUBE)
     Route: 048
     Dates: start: 20191008

REACTIONS (1)
  - Seizure [Recovered/Resolved]
